FAERS Safety Report 4394555-3 (Version None)
Quarter: 2004Q3

REPORT INFORMATION
  Report Type: 
  Country: None (occurrence: None)
  Receive Date: 20040712
  Receipt Date: 20040707
  Transmission Date: 20050211
  Serious: Yes (Death, Hospitalization, Other)
  Sender: FDA-Public Use
  Company Number: US-BRISTOL-MYERS SQUIBB COMPANY-12634291

PATIENT
  Age: 55 Year
  Sex: Male
  Weight: 67 kg

DRUGS (2)
  1. CETUXIMAB [Suspect]
     Indication: PANCREATIC CARCINOMA
     Dosage: PT REC'D LOADING DOSE ONLY WITHOUT INCIDENT.  TOTAL DOSE ADM: 700 MG
     Route: 042
     Dates: start: 20040525, end: 20040525
  2. GEMCITABINE [Suspect]
     Indication: PANCREATIC CARCINOMA
     Dosage: PT REC'D ONLY ONE DOSE WITHOUT INCIDENT.  TOTAL DOSE ADM: 1800MG.
     Route: 042
     Dates: start: 20040525, end: 20040525

REACTIONS (23)
  - ASCITES [None]
  - ASPARTATE AMINOTRANSFERASE INCREASED [None]
  - ASTHENIA [None]
  - BLOOD BILIRUBIN INCREASED [None]
  - BLOOD CALCIUM DECREASED [None]
  - BLOOD POTASSIUM INCREASED [None]
  - DECREASED APPETITE [None]
  - DEHYDRATION [None]
  - DISEASE PROGRESSION [None]
  - FATIGUE [None]
  - HEART RATE INCREASED [None]
  - HEPATIC LESION [None]
  - HICCUPS [None]
  - HYPONATRAEMIA [None]
  - HYPOTENSION [None]
  - INTERNATIONAL NORMALISED RATIO INCREASED [None]
  - LIVER DISORDER [None]
  - METASTASES TO LIVER [None]
  - METASTASES TO SMALL INTESTINE [None]
  - OEDEMA [None]
  - PANCREATIC CARCINOMA [None]
  - PERIPHERAL COLDNESS [None]
  - SEPSIS [None]
